FAERS Safety Report 15403446 (Version 1)
Quarter: 2018Q3

REPORT INFORMATION
  Report Type: Spontaneous
  Country: PT (occurrence: PT)
  Receive Date: 20180919
  Receipt Date: 20180919
  Transmission Date: 20181010
  Serious: Yes (Hospitalization)
  Sender: FDA-Public Use
  Company Number: PHHY2018PT100560

PATIENT
  Age: 88 Year
  Sex: Male

DRUGS (3)
  1. ACETYLSALICYLIC ACID [Concomitant]
     Active Substance: ASPIRIN
     Indication: PRODUCT USED FOR UNKNOWN INDICATION
     Dosage: UNK
     Route: 065
  2. ATORVASTATIN [Suspect]
     Active Substance: ATORVASTATIN
     Indication: PRODUCT USED FOR UNKNOWN INDICATION
     Dosage: UNK
     Route: 065
  3. CLOPIDOGREL [Suspect]
     Active Substance: CLOPIDOGREL BISULFATE
     Indication: PRODUCT USED FOR UNKNOWN INDICATION
     Dosage: UNK
     Route: 065

REACTIONS (13)
  - Somnolence [Recovered/Resolved]
  - Hypothermia [Recovered/Resolved]
  - Bradycardia [Recovered/Resolved]
  - Normochromic normocytic anaemia [Unknown]
  - Thrombocytopenia [Unknown]
  - Pyuria [Unknown]
  - Blood pressure decreased [Recovering/Resolving]
  - Asthenia [Recovered/Resolved]
  - Myxoedema coma [Recovering/Resolving]
  - Oedema peripheral [Unknown]
  - Renal failure [Unknown]
  - Fatigue [Recovered/Resolved]
  - Disorientation [Recovered/Resolved]
